FAERS Safety Report 20758863 (Version 1)
Quarter: 2022Q2

REPORT INFORMATION
  Report Type: Spontaneous
  Country: AR (occurrence: AR)
  Receive Date: 20220427
  Receipt Date: 20220427
  Transmission Date: 20220721
  Serious: Yes (Other)
  Sender: FDA-Public Use
  Company Number: AR-PFIZER INC-202200583576

PATIENT
  Age: 77 Year
  Sex: Male

DRUGS (2)
  1. DACOMITINIB [Suspect]
     Active Substance: DACOMITINIB
     Dosage: 45 MG, 1X/DAY
     Dates: start: 202104
  2. DACOMITINIB [Suspect]
     Active Substance: DACOMITINIB
     Dosage: 30MG, 1X/DAY

REACTIONS (4)
  - Nasal injury [Unknown]
  - Skin lesion [Unknown]
  - Mouth ulceration [Unknown]
  - Skin toxicity [Unknown]
